FAERS Safety Report 10360157 (Version 1)
Quarter: 2014Q3

REPORT INFORMATION
  Report Type: Spontaneous
  Country: ES (occurrence: None)
  Receive Date: 20140730
  Receipt Date: 20140730
  Transmission Date: 20150326
  Serious: Yes (Hospitalization)
  Sender: FDA-Public Use
  Company Number: IMP_07746_2014

PATIENT
  Age: 30 Month
  Sex: Male
  Weight: 14 kg

DRUGS (3)
  1. VALPROIC ACID (VALPROIC ACID) [Suspect]
     Active Substance: VALPROIC ACID
     Indication: IDIOPATHIC GENERALISED EPILEPSY
  2. LEVETIRACETAM. [Concomitant]
     Active Substance: LEVETIRACETAM
  3. HYDROCORTISONE. [Concomitant]
     Active Substance: HYDROCORTISONE

REACTIONS (2)
  - Hyperammonaemic encephalopathy [None]
  - Respiratory arrest [None]
